FAERS Safety Report 14289392 (Version 1)
Quarter: 2017Q4

REPORT INFORMATION
  Report Type: Spontaneous
  Country: US (occurrence: US)
  Receive Date: 20171214
  Receipt Date: 20171214
  Transmission Date: 20180321
  Serious: Yes (Other)
  Sender: FDA-Public Use
  Company Number: None

PATIENT
  Age: 22 Year
  Sex: Female
  Weight: 70.1 kg

DRUGS (2)
  1. NEXPLANON [Suspect]
     Active Substance: ETONOGESTREL
     Indication: CONTRACEPTION
     Dosage: ?          OTHER FREQUENCY:ONCE FOR UP TO 3 Y;?
     Route: 059
     Dates: start: 20170202, end: 20171126
  2. INFLUENZA VACCINE [Concomitant]
     Active Substance: INFLUENZA VIRUS VACCINE

REACTIONS (12)
  - Rhinorrhoea [None]
  - Pregnancy with implant contraceptive [None]
  - Influenza immunisation [None]
  - Nausea [None]
  - Cough [None]
  - Vomiting [None]
  - Dyschezia [None]
  - Device expulsion [None]
  - Rectal haemorrhage [None]
  - Injection site swelling [None]
  - Malaise [None]
  - Device dislocation [None]

NARRATIVE: CASE EVENT DATE: 20171126
